FAERS Safety Report 7565207-3 (Version None)
Quarter: 2011Q2

REPORT INFORMATION
  Report Type: 
  Country: None (occurrence: None)
  Receive Date: 20110622
  Receipt Date: 20110512
  Transmission Date: 20111010
  Serious: Yes (Death, Life-Threatening, Hospitalization, Other)
  Sender: FDA-Public Use
  Company Number: US-AMGEN-US346834

PATIENT
  Age: 60 Year
  Sex: Male

DRUGS (47)
  1. NPLATE [Suspect]
  2. NPLATE [Suspect]
  3. IMMUNOGLOBULINS [Concomitant]
     Dosage: UNK UNK, Q4WK
     Route: 042
     Dates: start: 19990101
  4. NAPROXEN [Concomitant]
     Route: 048
  5. MESNA [Concomitant]
  6. CISPLATIN [Concomitant]
  7. IVIGLOB-EX [Concomitant]
  8. DAUNORUBICIN HCL [Concomitant]
  9. DEXAMETHASONE [Concomitant]
     Dosage: 40 MG, UNK
     Dates: start: 20070101
  10. CARBOPLATIN [Concomitant]
  11. ALPRAZOLAM [Concomitant]
     Dosage: 1 MG, TID
  12. FLUTICASONE PROPIONATE [Concomitant]
     Dosage: 50 A?G, UNK
     Route: 045
  13. PREDNISONE [Concomitant]
     Dosage: 20 MG, UNK
  14. DETROL LA [Concomitant]
     Dosage: 4 MG, QID
  15. FLUDARABINE PHOSPHATE [Concomitant]
  16. PROGRAF [Concomitant]
  17. CYTARABINE [Concomitant]
     Dosage: 2 G, UNK
  18. MULTIVITAMIN                       /00097801/ [Concomitant]
  19. BUSULFAN [Concomitant]
  20. CELLCEPT [Concomitant]
  21. NPLATE [Suspect]
     Dates: start: 20080924, end: 20081207
  22. NPLATE [Suspect]
  23. NPLATE [Suspect]
  24. RITUXIMAB [Concomitant]
  25. DECADRON [Concomitant]
  26. DEXAMETHASONE [Concomitant]
     Dosage: 4 MG, UNK
  27. PROCHLORPERAZINE MALEATE [Concomitant]
     Dosage: 10 MG, PRN
  28. ONDANSETRON [Concomitant]
     Dosage: UNK
  29. ANTI-THYMOCYTE GLOBULIN NOS [Concomitant]
  30. VALTREX [Concomitant]
     Dosage: 1 G, UNK
  31. BLOOD AND RELATED PRODUCTS [Concomitant]
  32. ETOPOSIDE [Concomitant]
  33. IFEX [Concomitant]
  34. POTASSIUM CHLORIDE [Concomitant]
     Dosage: 10 MEQ, UNK
  35. TRIAMTERENE AND HYDROCHLOROTHIAZID [Concomitant]
     Dosage: UNK UNK, QID
  36. NPLATE [Suspect]
     Indication: IDIOPATHIC THROMBOCYTOPENIC PURPURA
     Dosage: UNK UNK, UNK
     Dates: start: 20080924, end: 20081207
  37. ARANESP [Suspect]
     Dosage: UNK
     Dates: start: 20081017
  38. ALOXI [Concomitant]
  39. BENADRYL [Concomitant]
     Route: 048
  40. LIPITOR [Concomitant]
     Dosage: 10 MG, UNK
  41. METFORMIN HCL [Concomitant]
     Dosage: 500 MG, BID
  42. METHOTREXATE [Concomitant]
  43. NEULASTA [Suspect]
     Dosage: 6 MG, UNK
  44. MUCINEX [Concomitant]
     Dosage: 600 MG, UNK
  45. TRICOR [Concomitant]
     Dosage: 145 MG, UNK
  46. AZITHROMYCIN [Concomitant]
     Dosage: 250 MG, UNK
  47. PENTAMIDINE ISETHIONATE [Concomitant]

REACTIONS (13)
  - MYELODYSPLASTIC SYNDROME [None]
  - MYELITIS [None]
  - ADRENAL INSUFFICIENCY [None]
  - NEOPLASM MALIGNANT [None]
  - NEUROTOXICITY [None]
  - GRAFT LOSS [None]
  - BRAIN OEDEMA [None]
  - CARBON DIOXIDE DECREASED [None]
  - ACUTE MYELOID LEUKAEMIA [None]
  - JUGULAR VEIN THROMBOSIS [None]
  - DEATH [None]
  - DYSPNOEA [None]
  - ORTHOSTATIC HYPOTENSION [None]
